FAERS Safety Report 7069573-7 (Version None)
Quarter: 2010Q4

REPORT INFORMATION
  Report Type: 
  Country: None (occurrence: None)
  Receive Date: 20101028
  Receipt Date: 20100318
  Transmission Date: 20110411
  Serious: No
  Sender: FDA-Public Use
  Company Number: US-WYE-H14188110

PATIENT
  Sex: Female
  Weight: 88.53 kg

DRUGS (8)
  1. EFFEXOR [Suspect]
     Indication: DEPRESSION
     Route: 048
     Dates: start: 20091101, end: 20100101
  2. TOPAMAX [Concomitant]
  3. CELEXA [Concomitant]
  4. SINGULAIR [Concomitant]
  5. LEVOTHYROXINE [Concomitant]
  6. NEXIUM [Concomitant]
  7. YAZ [Concomitant]
  8. FOLIC ACID [Concomitant]

REACTIONS (2)
  - ABDOMINAL DISTENSION [None]
  - CONSTIPATION [None]
